FAERS Safety Report 11121437 (Version 1)
Quarter: 2015Q2

REPORT INFORMATION
  Report Type: Spontaneous
  Country: FR (occurrence: None)
  Receive Date: 20150515
  Receipt Date: 20150515
  Transmission Date: 20150821
  Serious: Yes (Hospitalization)
  Sender: FDA-Public Use
  Company Number: FK201502205

PATIENT
  Age: 79 Year
  Sex: Female

DRUGS (2)
  1. ERLOTINIB (ERLOTINIB HYDROCHLORIDE) TABLET [Concomitant]
     Active Substance: ERLOTINIB HYDROCHLORIDE
  2. DOXYCYCLINE FOR INJECTION (MANUFACTURER UNKNOWN) (DOXYCYCLINE HYCLATE)(DOXYCYCLINE HYCLATE) [Suspect]
     Active Substance: DOXYCYCLINE
     Indication: RASH PUSTULAR
     Dosage: ^NEAR^ JULY 15TH

REACTIONS (2)
  - Pancreatitis acute [None]
  - Off label use [None]
